FAERS Safety Report 8649943 (Version 3)
Quarter: 2013Q1

REPORT INFORMATION
  Report Type: Spontaneous
  Country: US (occurrence: US)
  Receive Date: 20120705
  Receipt Date: 20130111
  Transmission Date: 20140127
  Serious: Yes (Death)
  Sender: FDA-Public Use
  Company Number: US-VIROPHARMA INCORPORATED-20120622CINRY3082

PATIENT
  Age: 45 Year
  Sex: Female

DRUGS (4)
  1. CINRYZE (C1 ESTERASE INHIBITOR (HUMAN)) [Suspect]
     Indication: HEREDITARY ANGIOEDEMA
     Route: 065
  2. KALBITOR [Suspect]
     Indication: HEREDITARY ANGIOEDEMA
     Dosage: UNKNOWN
     Route: 058
     Dates: start: 20110604
  3. LISINOPRIL [Suspect]
     Dosage: NOT APPLICABLE
     Route: 065
  4. CLONAZEPAM [Concomitant]
     Indication: STRESS
     Dosage: UNKNOWN
     Route: 065

REACTIONS (5)
  - Accidental exposure to product [Fatal]
  - Hypotension [Fatal]
  - Hypoxia [Fatal]
  - Inappropriate schedule of drug administration [Unknown]
  - Hereditary angioedema [Not Recovered/Not Resolved]
